FAERS Safety Report 9133623 (Version 3)
Quarter: 2013Q2

REPORT INFORMATION
  Report Type: Spontaneous
  Country: JP (occurrence: JP)
  Receive Date: 20130125
  Receipt Date: 20130530
  Transmission Date: 20140414
  Serious: Yes (Other)
  Sender: FDA-Public Use
  Company Number: JP-B.I. PHARMACEUTICALS,INC./RIDGEFIELD-2013-BI-01707NB

PATIENT
  Age: 5 Decade
  Sex: Male

DRUGS (3)
  1. TRAZENTA [Suspect]
     Indication: TYPE 2 DIABETES MELLITUS
     Dosage: 5 MG
     Route: 048
     Dates: start: 201210, end: 201301
  2. ARB [Concomitant]
     Dosage: NR
     Route: 065
  3. DIURETICS [Concomitant]
     Dosage: NR
     Route: 065

REACTIONS (2)
  - Renal failure acute [Not Recovered/Not Resolved]
  - Dehydration [Unknown]
